FAERS Safety Report 21248890 (Version 1)
Quarter: 2022Q3

REPORT INFORMATION
  Report Type: Spontaneous
  Country: US (occurrence: US)
  Receive Date: 20220824
  Receipt Date: 20220824
  Transmission Date: 20221027
  Serious: No
  Sender: FDA-Public Use
  Company Number: US-ANIPHARMA-2022-US-006396

PATIENT
  Age: 75 Year
  Sex: Female
  Weight: 92.53 kg

DRUGS (2)
  1. ARIMIDEX [Suspect]
     Active Substance: ANASTROZOLE
     Indication: Breast cancer
     Route: 048
     Dates: start: 201603, end: 20220316
  2. UNSPECIFIED INGREDIENT [Concomitant]
     Active Substance: UNSPECIFIED INGREDIENT
     Dosage: DIALY
     Route: 065

REACTIONS (2)
  - Dizziness [Recovered/Resolved]
  - Fatigue [Recovered/Resolved]

NARRATIVE: CASE EVENT DATE: 20220316
